FAERS Safety Report 5105462-2 (Version None)
Quarter: 2006Q3

REPORT INFORMATION
  Report Type: 
  Country: None (occurrence: None)
  Receive Date: 20060915
  Receipt Date: 20060721
  Transmission Date: 20061208
  Serious: No
  Sender: FDA-Public Use
  Company Number: US-GLAXOSMITHKLINE-A0613110A

PATIENT
  Sex: Female

DRUGS (6)
  1. AVANDARYL [Suspect]
     Dosage: 1TAB PER DAY
     Route: 048
     Dates: start: 20060601
  2. OSCAL [Concomitant]
  3. VITAMIN [Concomitant]
  4. BACTRIM [Concomitant]
  5. ASPIRIN [Concomitant]
  6. LIPITOR [Concomitant]

REACTIONS (2)
  - HYPERHIDROSIS [None]
  - TREMOR [None]
